FAERS Safety Report 9831847 (Version 1)
Quarter: 2014Q1

REPORT INFORMATION
  Report Type: Spontaneous
  Country: US (occurrence: US)
  Receive Date: 20140121
  Receipt Date: 20140121
  Transmission Date: 20141002
  Serious: Yes (Hospitalization, Other)
  Sender: FDA-Public Use
  Company Number: US-BEH-2014040089

PATIENT
  Age: 31 Year
  Sex: Female

DRUGS (1)
  1. RHOPHYLAC [Suspect]
     Indication: FOETAL-MATERNAL HAEMORRHAGE
     Dosage: 11 VIALS
     Route: 040
     Dates: start: 20140110

REACTIONS (4)
  - Disseminated intravascular coagulation [Unknown]
  - Jaundice [Unknown]
  - Renal failure [Unknown]
  - Thrombocytopenia [Unknown]
